FAERS Safety Report 16296384 (Version 5)
Quarter: 2020Q2

REPORT INFORMATION
  Report Type: Report from Study
  Country: DE (occurrence: DE)
  Receive Date: 20190510
  Receipt Date: 20200501
  Transmission Date: 20200713
  Serious: Yes (Death, Hospitalization)
  Sender: FDA-Public Use
  Company Number: DE-ROCHE-2277506

PATIENT
  Age: 70 Year
  Sex: Female
  Weight: 70 kg

DRUGS (9)
  1. PANTOPRAZOL [PANTOPRAZOLE] [Concomitant]
     Active Substance: PANTOPRAZOLE
     Indication: DYSPEPSIA
     Route: 065
     Dates: start: 20181210
  2. NOVALGIN (METAMIZOLE SODIUM) [Concomitant]
     Active Substance: METAMIZOLE SODIUM
     Indication: PAIN
     Route: 065
     Dates: start: 20181210
  3. ZOLPIDEM [Concomitant]
     Active Substance: ZOLPIDEM TARTRATE
     Indication: INSOMNIA
     Route: 065
     Dates: start: 20181210
  4. MYCOPHENOLATE MOFETIL. [Concomitant]
     Active Substance: MYCOPHENOLATE MOFETIL
     Indication: IMMUNE-MEDIATED HEPATITIS
     Route: 065
     Dates: start: 20190221, end: 20190226
  5. ATEZOLIZUMAB. [Suspect]
     Active Substance: ATEZOLIZUMAB
     Indication: OVARIAN CANCER
     Dosage: MOST RECENT DOSE OF ATEZOLIZUMAB PRIOR TO AE ONSET: 08/JAN/2019.?ON DAY 1 OF EACH 21-DAY CYCLE.
     Route: 042
     Dates: start: 20181120
  6. CARBOPLATIN. [Suspect]
     Active Substance: CARBOPLATIN
     Indication: OVARIAN CANCER
     Dosage: MOST RECENT DOSE OF CARBOPLATIN (742.26MG) PRIOR TO SAE ONSET: 08/JAN/2019.?DOSE TO ACHIEVE A TARGET
     Route: 042
     Dates: start: 20181120
  7. PACLITAXEL. [Suspect]
     Active Substance: PACLITAXEL
     Indication: OVARIAN CANCER
     Dosage: MOST RECENT DOSE OF PACLITAXEL (281.75MG) PRIOR TO AE ONSET: 08/JAN/2019.?ON DAY 1 OF EACH 21-DAY CY
     Route: 042
     Dates: start: 20181120
  8. PREDNISOLON [PREDNISOLONE] [Concomitant]
     Active Substance: PREDNISOLONE
     Indication: IMMUNE-MEDIATED HEPATITIS
     Route: 048
     Dates: start: 20190228, end: 20190424
  9. BEVACIZUMAB. [Suspect]
     Active Substance: BEVACIZUMAB
     Indication: OVARIAN CANCER
     Dosage: MOST RECENT DOSE OF BEVACIZUMAB (840 MG)  PRIOR TO AE ONSET: 08/JAN/2019.
     Route: 042
     Dates: start: 20181211

REACTIONS (2)
  - Spinal pain [Not Recovered/Not Resolved]
  - Peritonitis [Fatal]

NARRATIVE: CASE EVENT DATE: 20190304
